FAERS Safety Report 23859299 (Version 1)
Quarter: 2024Q2

REPORT INFORMATION
  Report Type: Spontaneous
  Country: CA (occurrence: CA)
  Receive Date: 20240515
  Receipt Date: 20240515
  Transmission Date: 20240716
  Serious: Yes (Other)
  Sender: FDA-Public Use
  Company Number: CA-BAUSCH-BL-2024-007222

PATIENT
  Age: 14 Year
  Sex: Male

DRUGS (5)
  1. DEXAMETHASONE [Suspect]
     Active Substance: DEXAMETHASONE
     Indication: Vasogenic cerebral oedema
     Route: 065
  2. DEXAMETHASONE [Suspect]
     Active Substance: DEXAMETHASONE
     Indication: Glioma
     Route: 065
  3. LOMUSTINE;TEMOZOLOMIDE [Concomitant]
     Indication: Glioma
     Route: 065
  4. TRAMETINIB [Concomitant]
     Active Substance: TRAMETINIB
     Indication: Glioma
     Route: 065
  5. BEVACIZUMAB [Concomitant]
     Active Substance: BEVACIZUMAB
     Indication: Glioma
     Dosage: 4 DOSES Q 2 WK
     Route: 065

REACTIONS (3)
  - Steroid dependence [Unknown]
  - Diabetes mellitus [Unknown]
  - Osteonecrosis [Unknown]
